FAERS Safety Report 7603523-7 (Version None)
Quarter: 2011Q3

REPORT INFORMATION
  Report Type: 
  Country: None (occurrence: None)
  Receive Date: 20110701
  Receipt Date: 20110622
  Transmission Date: 20111222
  Serious: Yes (Hospitalization, Other)
  Sender: FDA-Public Use
  Company Number: US-2011-10430

PATIENT
  Age: 53 Year
  Sex: Male

DRUGS (11)
  1. MIANSERINE (MIANSERIN HYDROCHLORIDE) [Concomitant]
  2. FOLATE (FOLIC ACID) [Concomitant]
  3. PREDNISOLONE [Concomitant]
  4. BISOPROLOL (BISOPROLOL HEMIFUMARATE) [Concomitant]
  5. CYCLOSPORINE [Concomitant]
  6. SULFAMEHOXAZOLE AND TRIMETHOPRIM (SULFAMETHOXAZOLE, TRIMETHOPRIM) [Concomitant]
  7. ACYCLOVIR [Concomitant]
  8. MAGNESIUM (MAGNESIUM) [Concomitant]
  9. BUSULFEX [Suspect]
     Indication: STEM CELL TRANSPLANT
     Dosage: INTRAVENOUS
     Route: 042
  10. FLUDARABINE PHOSPHATE [Suspect]
     Indication: STEM CELL TRANSPLANT
  11. ENALAPRIL MALEATE [Concomitant]

REACTIONS (12)
  - MENINGIOMA [None]
  - BLOOD PRESSURE DIASTOLIC INCREASED [None]
  - RENAL FAILURE ACUTE [None]
  - HAEMATOTOXICITY [None]
  - ACUTE GRAFT VERSUS HOST DISEASE [None]
  - DEEP VEIN THROMBOSIS [None]
  - HYPERCHOLESTEROLAEMIA [None]
  - GLOMERULONEPHRITIS MINIMAL LESION [None]
  - CYTOMEGALOVIRUS INFECTION [None]
  - NEPHROTIC SYNDROME [None]
  - HEPATIC ENZYME INCREASED [None]
  - RENAL TUBULAR NECROSIS [None]
